FAERS Safety Report 9101878 (Version 1)
Quarter: 2013Q1

REPORT INFORMATION
  Report Type: Spontaneous
  Country: GB (occurrence: GB)
  Receive Date: 20130218
  Receipt Date: 20130218
  Transmission Date: 20140127
  Serious: Yes (Life-Threatening, Hospitalization)
  Sender: FDA-Public Use
  Company Number: GB-ASTRAZENECA-2013SE09755

PATIENT
  Age: 74 Year
  Sex: Female

DRUGS (3)
  1. OMEPRAZOLE [Suspect]
     Route: 048
  2. TAZOCIN [Suspect]
     Indication: PNEUMONIA
     Route: 042
     Dates: start: 20110211, end: 20110215
  3. CIPROFLOXACIN [Suspect]
     Indication: ANTIBIOTIC PROPHYLAXIS
     Route: 048
     Dates: start: 20110215, end: 20110403

REACTIONS (3)
  - Clostridium difficile colitis [Recovered/Resolved]
  - Intestinal dilatation [Unknown]
  - Frequent bowel movements [Recovered/Resolved]
